FAERS Safety Report 5163620-5 (Version None)
Quarter: 2006Q4

REPORT INFORMATION
  Report Type: 
  Country: None (occurrence: None)
  Receive Date: 20061204
  Receipt Date: 20061122
  Transmission Date: 20070319
  Serious: Yes (Hospitalization)
  Sender: FDA-Public Use
  Company Number: IT-JNJFOC-20061105713

PATIENT
  Age: 78 Year
  Sex: Male

DRUGS (1)
  1. REOPRO [Suspect]
     Indication: CORONARY ARTERIAL STENT INSERTION
     Route: 042

REACTIONS (2)
  - PULMONARY ALVEOLAR HAEMORRHAGE [None]
  - RESPIRATORY FAILURE [None]
